FAERS Safety Report 12877138 (Version 1)
Quarter: 2016Q4

REPORT INFORMATION
  Report Type: Spontaneous
  Country: US (occurrence: US)
  Receive Date: 20161023
  Receipt Date: 20161023
  Transmission Date: 20170207
  Serious: Yes (Life-Threatening, Hospitalization, Disabling, Other)
  Sender: FDA-Public Use
  Company Number: None

PATIENT
  Age: 66 Year
  Sex: Female
  Weight: 65.7 kg

DRUGS (2)
  1. CIPROFLOXACIN. [Suspect]
     Active Substance: CIPROFLOXACIN
     Indication: ANIMAL BITE
     Dosage: ?          QUANTITY:28 TABLET(S);?
     Route: 048
  2. SYNTHROID [Concomitant]
     Active Substance: LEVOTHYROXINE SODIUM

REACTIONS (41)
  - Glossodynia [None]
  - Rash generalised [None]
  - Cognitive disorder [None]
  - Asthenia [None]
  - Arthralgia [None]
  - Haemobilia [None]
  - Cholecystitis infective [None]
  - Drug hypersensitivity [None]
  - Mental impairment [None]
  - Abdominal pain [None]
  - Reading disorder [None]
  - Dysgraphia [None]
  - Disorientation [None]
  - Dysphagia [None]
  - Fear [None]
  - Panic reaction [None]
  - Ligament rupture [None]
  - Mouth ulceration [None]
  - Seizure [None]
  - Dysarthria [None]
  - Tremor [None]
  - Muscular weakness [None]
  - Impaired healing [None]
  - Abdominal discomfort [None]
  - Cholelithiasis [None]
  - Gastric infection [None]
  - Oral pain [None]
  - Gait disturbance [None]
  - Frustration tolerance decreased [None]
  - Muscle fatigue [None]
  - Dyspnoea [None]
  - Muscle disorder [None]
  - Myalgia [None]
  - Quadriplegia [None]
  - Dysstasia [None]
  - Gallbladder disorder [None]
  - Swollen tongue [None]
  - Confusional state [None]
  - Walking aid user [None]
  - Suicidal ideation [None]
  - Fall [None]

NARRATIVE: CASE EVENT DATE: 20141013
